FAERS Safety Report 4417057-4 (Version None)
Quarter: 2004Q3

REPORT INFORMATION
  Report Type: 
  Country: None (occurrence: None)
  Receive Date: 20040802
  Receipt Date: 20040726
  Transmission Date: 20050211
  Serious: Yes (Disabling, Other)
  Sender: FDA-Public Use
  Company Number: 2004225271US

PATIENT
  Sex: Male

DRUGS (2)
  1. XANAX [Suspect]
  2. NARDIL [Suspect]

REACTIONS (14)
  - ALCOHOLISM [None]
  - AMNESIA [None]
  - ANXIETY [None]
  - BACK INJURY [None]
  - CONFUSIONAL STATE [None]
  - FALL [None]
  - FATIGUE [None]
  - INTENTIONAL MISUSE [None]
  - MAJOR DEPRESSION [None]
  - PANIC DISORDER [None]
  - SELF-MEDICATION [None]
  - SEXUAL DYSFUNCTION [None]
  - SLEEP APNOEA SYNDROME [None]
  - THERAPEUTIC RESPONSE DECREASED [None]
